FAERS Safety Report 20541383 (Version 1)
Quarter: 2022Q1

REPORT INFORMATION
  Report Type: Spontaneous
  Country: FR (occurrence: FR)
  Receive Date: 20220302
  Receipt Date: 20220302
  Transmission Date: 20220423
  Serious: Yes (Hospitalization, Other)
  Sender: FDA-Public Use
  Company Number: FR-BAYER-2021A218866

PATIENT
  Age: 50 Year
  Sex: Female

DRUGS (5)
  1. XARELTO [Suspect]
     Active Substance: RIVAROXABAN
     Indication: Product used for unknown indication
     Dosage: 20 MG
     Route: 048
     Dates: start: 202011, end: 202109
  2. XARELTO [Suspect]
     Active Substance: RIVAROXABAN
     Dosage: 5 MG
     Route: 048
     Dates: start: 20210924, end: 20211001
  3. XARELTO [Suspect]
     Active Substance: RIVAROXABAN
     Dosage: 10 MG
     Route: 048
     Dates: start: 202110
  4. XARELTO [Suspect]
     Active Substance: RIVAROXABAN
     Dosage: 15 MG
     Route: 048
     Dates: start: 2021
  5. XARELTO [Suspect]
     Active Substance: RIVAROXABAN
     Dosage: 20 MG
     Route: 048
     Dates: start: 2021

REACTIONS (3)
  - Breast operation [Unknown]
  - Product prescribing issue [Unknown]
  - Wrong technique in product usage process [Unknown]

NARRATIVE: CASE EVENT DATE: 20210926
